FAERS Safety Report 14525625 (Version 4)
Quarter: 2018Q4

REPORT INFORMATION
  Report Type: Report from Study
  Country: ES (occurrence: ES)
  Receive Date: 20180213
  Receipt Date: 20181220
  Transmission Date: 20190204
  Serious: Yes (Death, Hospitalization)
  Sender: FDA-Public Use
  Company Number: ES-PFIZER INC-2018058822

PATIENT
  Age: 64 Year
  Sex: Female

DRUGS (10)
  1. AFLIBERCEPT [Suspect]
     Active Substance: AFLIBERCEPT
     Indication: COLORECTAL CANCER METASTATIC
     Dosage: 232 MG, EVERY 2 WEEKS
     Route: 042
     Dates: start: 20171220, end: 20171220
  2. LANTUS [Concomitant]
     Active Substance: INSULIN GLARGINE
     Indication: TYPE 2 DIABETES MELLITUS
     Dosage: FORM:UNKNOWN
     Route: 048
  3. LEUCOVORIN /00566701/ [Suspect]
     Active Substance: LEUCOVORIN
     Indication: COLORECTAL CANCER METASTATIC
     Dosage: 1 DF, CYCLIC, FORM:UNKNOWN
     Route: 042
  4. NOVORAPID [Concomitant]
     Active Substance: INSULIN ASPART
     Indication: TYPE 2 DIABETES MELLITUS
     Dosage: FORM:UNKNOWN
     Route: 048
  5. DILTIAZEM. [Concomitant]
     Active Substance: DILTIAZEM
     Indication: HYPERTENSION
     Dosage: FORM:UNKNOWN
     Route: 048
  6. QUINAPRIL. [Concomitant]
     Active Substance: QUINAPRIL
     Indication: HYPERTENSION
     Dosage: 40 MG, FORM:UNKNOWN
     Route: 048
  7. 5-FU /00098801/ [Suspect]
     Active Substance: FLUOROURACIL
     Dosage: 616 MG, EVERY 2 WEEKS, FORM:UNKNOWN
     Route: 042
     Dates: start: 20171220, end: 20171220
  8. IRINOTECAN HCL [Suspect]
     Active Substance: IRINOTECAN HYDROCHLORIDE
     Indication: COLORECTAL CANCER METASTATIC
     Dosage: 616 MG, EVERY 2 WEEKS, FORM:UNKNOWN
     Route: 042
     Dates: start: 20171220, end: 20171220
  9. 5-FU /00098801/ [Suspect]
     Active Substance: FLUOROURACIL
     Indication: COLORECTAL CANCER METASTATIC
     Dosage: 3696 MG, EVERY 2 WEEKS
     Route: 042
     Dates: start: 20171220, end: 20171220
  10. ATORVASTATIN [Concomitant]
     Active Substance: ATORVASTATIN
     Indication: DYSLIPIDAEMIA
     Dosage: FORM:UNKNOWN
     Route: 048

REACTIONS (1)
  - Gastrointestinal toxicity [Fatal]

NARRATIVE: CASE EVENT DATE: 20180102
